FAERS Safety Report 19039904 (Version 3)
Quarter: 2021Q2

REPORT INFORMATION
  Report Type: Spontaneous
  Country: US (occurrence: US)
  Receive Date: 20210322
  Receipt Date: 20210503
  Transmission Date: 20210717
  Serious: Yes (Hospitalization, Other)
  Sender: FDA-Public Use
  Company Number: US-AMGEN-USASP2021043730

PATIENT
  Age: 54 Year
  Sex: Male
  Weight: 83.9 kg

DRUGS (2)
  1. SIMPONI [Suspect]
     Active Substance: GOLIMUMAB
     Indication: PRODUCT USED FOR UNKNOWN INDICATION
     Dosage: UNK
     Route: 065
  2. ENBREL [Suspect]
     Active Substance: ETANERCEPT
     Indication: PSORIATIC ARTHROPATHY
     Dosage: 1 DF (1 INJECTION), TWICE A MONTH
     Route: 058
     Dates: end: 20150401

REACTIONS (4)
  - Therapeutic product effect incomplete [Unknown]
  - Guillain-Barre syndrome [Recovered/Resolved]
  - Fear of injection [Unknown]
  - Off label use [Unknown]

NARRATIVE: CASE EVENT DATE: 20181010
